FAERS Safety Report 8274242-1 (Version None)
Quarter: 2012Q2

REPORT INFORMATION
  Report Type: 
  Country: None (occurrence: None)
  Receive Date: 20120411
  Receipt Date: 20120402
  Transmission Date: 20120825
  Serious: Yes (Hospitalization)
  Sender: FDA-Public Use
  Company Number: JP-JNJFOC-20120105441

PATIENT
  Sex: Male

DRUGS (5)
  1. STELARA [Suspect]
     Indication: PSORIASIS
     Route: 058
     Dates: start: 20120314
  2. BROTIZOLAM [Concomitant]
     Indication: DEPRESSION
     Route: 048
     Dates: start: 20070801
  3. PAXIL [Concomitant]
     Indication: DEPRESSION
     Route: 048
     Dates: start: 20070801
  4. STELARA [Suspect]
     Route: 058
     Dates: start: 20111116
  5. LEXOTAN [Concomitant]
     Indication: DEPRESSION
     Route: 048
     Dates: start: 20070801

REACTIONS (9)
  - LYMPHADENOPATHY [None]
  - WHITE BLOOD CELL COUNT INCREASED [None]
  - HEADACHE [None]
  - C-REACTIVE PROTEIN INCREASED [None]
  - ASCITES [None]
  - PYREXIA [None]
  - DIARRHOEA [None]
  - HEPATIC CYST [None]
  - HEPATIC ENZYME INCREASED [None]
